FAERS Safety Report 7243739-5 (Version None)
Quarter: 2011Q1

REPORT INFORMATION
  Report Type: 
  Country: None (occurrence: None)
  Receive Date: 20110125
  Receipt Date: 20110120
  Transmission Date: 20110831
  Serious: No
  Sender: FDA-Public Use
  Company Number: US-PFIZER INC-2011014749

PATIENT
  Sex: Female
  Weight: 81.633 kg

DRUGS (2)
  1. DEPO-PROVERA [Suspect]
     Indication: CONTRACEPTION
     Dosage: UNK
     Route: 030
     Dates: start: 20101001
  2. HUMIRA [Concomitant]
     Indication: PSORIASIS
     Dosage: UNK

REACTIONS (4)
  - DRUG DOSE OMISSION [None]
  - BREAST TENDERNESS [None]
  - VOMITING [None]
  - NAUSEA [None]
